FAERS Safety Report 23740606 (Version 3)
Quarter: 2024Q2

REPORT INFORMATION
  Report Type: Spontaneous
  Country: US (occurrence: None)
  Receive Date: 20240415
  Receipt Date: 20240614
  Transmission Date: 20240715
  Serious: No
  Sender: FDA-Public Use
  Company Number: 2024A078780

PATIENT
  Age: 69 Year
  Sex: Female

DRUGS (1)
  1. BREZTRI [Suspect]
     Active Substance: BUDESONIDE\FORMOTEROL\GLYCOPYRROLATE
     Indication: Chronic obstructive pulmonary disease
     Dosage: 2 PUFFS
     Route: 055
     Dates: start: 20230120

REACTIONS (6)
  - Dyspnoea [Unknown]
  - Intentional product misuse [Unknown]
  - Incorrect dose administered by device [Unknown]
  - Device malfunction [Unknown]
  - Device delivery system issue [Unknown]
  - Drug ineffective [Unknown]
